FAERS Safety Report 11852624 (Version 1)
Quarter: 2015Q4

REPORT INFORMATION
  Report Type: Spontaneous
  Country: US (occurrence: US)
  Receive Date: 20151218
  Receipt Date: 20151218
  Transmission Date: 20160305
  Serious: Yes (Death)
  Sender: FDA-Public Use
  Company Number: US-LPDUSPRD-20151037

PATIENT
  Age: 15 Year
  Sex: Male

DRUGS (1)
  1. METOPROLOL INJECTION, USP (1355-10) [Suspect]
     Active Substance: METOPROLOL
     Dosage: 4 MG/KG/DAY
     Route: 065

REACTIONS (3)
  - Cardiac arrest [Fatal]
  - Syncope [Fatal]
  - Treatment failure [Fatal]
